FAERS Safety Report 6966345-6 (Version None)
Quarter: 2010Q3

REPORT INFORMATION
  Report Type: 
  Country: None (occurrence: None)
  Receive Date: 20100903
  Receipt Date: 20100901
  Transmission Date: 20110219
  Serious: Yes (Death)
  Sender: FDA-Public Use
  Company Number: CA-ROCHE-724926

PATIENT
  Age: 73 Year
  Sex: Male
  Weight: 122.5 kg

DRUGS (5)
  1. CAPECITABINE [Suspect]
     Indication: PRODUCT USED FOR UNKNOWN INDICATION
     Route: 065
  2. SUNITINIB MALATE [Suspect]
     Indication: PRODUCT USED FOR UNKNOWN INDICATION
     Dosage: FORM: CAPSULE HARD.
     Route: 065
  3. AVODART [Concomitant]
     Route: 048
     Dates: start: 20000101
  4. FLOMAX [Concomitant]
     Dosage: DRUG REPORTED AS: FLOMAX HYDROCHLORIDE.
     Route: 048
  5. IMODIUM [Concomitant]
     Route: 048
     Dates: start: 20100210

REACTIONS (1)
  - DEATH [None]
